FAERS Safety Report 7449249-4 (Version None)
Quarter: 2011Q2

REPORT INFORMATION
  Report Type: 
  Country: None (occurrence: None)
  Receive Date: 20110502
  Receipt Date: 20110330
  Transmission Date: 20111010
  Serious: Yes (Hospitalization)
  Sender: FDA-Public Use
  Company Number: CA-BAYER-2011-030427

PATIENT
  Age: 40 Year
  Sex: Male

DRUGS (3)
  1. CLARITHROMYCIN [Suspect]
  2. NAPROXEN SODIUM [Suspect]
  3. CEPHALEXIN [Suspect]

REACTIONS (2)
  - PRURITUS [None]
  - URTICARIA [None]
